FAERS Safety Report 8890866 (Version 1)
Quarter: 2012Q4

REPORT INFORMATION
  Report Type: 
  Country: US (occurrence: US)
  Receive Date: 20121106
  Receipt Date: 20121106
  Transmission Date: 20130627
  Serious: Yes (Hospitalization)
  Sender: FDA-Public Use
  Company Number: US-ELI_LILLY_AND_COMPANY-US201210008415

PATIENT
  Sex: Female

DRUGS (10)
  1. CYMBALTA [Suspect]
     Indication: DEPRESSION
     Dosage: 90 mg, qd
  2. SEROQUEL [Concomitant]
  3. LOVASTATIN [Concomitant]
  4. LISINOPRIL [Concomitant]
  5. NOVOLOG MIX 70/30 [Concomitant]
  6. VICODIN [Concomitant]
  7. GLYBURIDE [Concomitant]
  8. ABILIFY [Concomitant]
  9. ASPIRIN LOW [Concomitant]
     Dosage: 81 mg, UNK
  10. METFORMIN [Concomitant]

REACTIONS (1)
  - Obesity [Unknown]
